FAERS Safety Report 6684718-6 (Version None)
Quarter: 2010Q2

REPORT INFORMATION
  Report Type: 
  Country: None (occurrence: None)
  Receive Date: 20100416
  Receipt Date: 20100325
  Transmission Date: 20101027
  Serious: No
  Sender: FDA-Public Use
  Company Number: US-ELI_LILLY_AND_COMPANY-US201003008117

PATIENT
  Age: 60 Year
  Sex: Male

DRUGS (10)
  1. CYMBALTA [Suspect]
     Indication: DEPRESSION
     Dosage: 20 MG, UNK
     Route: 048
     Dates: start: 20100301, end: 20100301
  2. COUMADIN [Concomitant]
     Indication: ATRIAL FIBRILLATION
     Dosage: 2 MG, UNK
  3. ASPIRIN [Concomitant]
     Indication: ATRIAL FIBRILLATION
     Dosage: 81 MG, UNK
  4. DIGOXIN [Concomitant]
     Indication: ATRIAL FIBRILLATION
  5. FUROSEMIDE [Concomitant]
  6. SINOPRYL [Concomitant]
  7. ZOCOR [Concomitant]
  8. NIACIN [Concomitant]
  9. TOPROL-XL [Concomitant]
  10. OXYCODONE [Concomitant]

REACTIONS (2)
  - DYSPNOEA [None]
  - URTICARIA [None]
